FAERS Safety Report 15324901 (Version 1)
Quarter: 2018Q3

REPORT INFORMATION
  Report Type: Spontaneous
  Country: US (occurrence: US)
  Receive Date: 20180828
  Receipt Date: 20180828
  Transmission Date: 20181010
  Serious: No
  Sender: FDA-Public Use
  Company Number: US-GRANULES INDIA LIMITED-2054314

PATIENT
  Age: 61 Year
  Sex: Male
  Weight: 102.73 kg

DRUGS (9)
  1. TOPROL XL [Concomitant]
     Active Substance: METOPROLOL SUCCINATE
     Route: 065
  2. PLAVIX [Concomitant]
     Active Substance: CLOPIDOGREL BISULFATE
     Route: 065
  3. ZETIA [Concomitant]
     Active Substance: EZETIMIBE
     Route: 065
  4. IMDUR ER (ISOSORBIDE MONONITRATE) [Concomitant]
     Route: 065
  5. PLETAL [Concomitant]
     Active Substance: CILOSTAZOL
     Route: 065
  6. TRICOR [Concomitant]
     Active Substance: FENOFIBRATE
     Route: 065
  7. PROTONIX [Concomitant]
     Active Substance: PANTOPRAZOLE SODIUM
     Route: 065
  8. METFORMIN HYDROCHLORIDE. [Suspect]
     Active Substance: METFORMIN HYDROCHLORIDE
     Indication: TYPE 2 DIABETES MELLITUS
     Route: 048
     Dates: start: 20180721
  9. RANEXA [Concomitant]
     Active Substance: RANOLAZINE
     Route: 065

REACTIONS (6)
  - Vomiting [Recovered/Resolved]
  - Product contamination [Unknown]
  - Intentional dose omission [Unknown]
  - Product contamination physical [Unknown]
  - Abdominal discomfort [Recovering/Resolving]
  - Nausea [Recovering/Resolving]
